FAERS Safety Report 21264096 (Version 1)
Quarter: 2022Q3

REPORT INFORMATION
  Report Type: Spontaneous
  Country: US (occurrence: US)
  Receive Date: 20220829
  Receipt Date: 20220829
  Transmission Date: 20221027
  Serious: No
  Sender: FDA-Public Use
  Company Number: US-AUROBINDO-AUR-APL-2022-021169

PATIENT
  Age: 45 Year
  Sex: Male
  Weight: 104 kg

DRUGS (1)
  1. AZELASTINE HYDROCHLORIDE [Suspect]
     Active Substance: AZELASTINE HYDROCHLORIDE
     Indication: Hypersensitivity
     Dosage: 02 SPRAYS IN EACH NOSTRIL, ONCE A DAY
     Route: 045
     Dates: start: 201806

REACTIONS (2)
  - Nasal congestion [Not Recovered/Not Resolved]
  - Product dose omission issue [Unknown]
